FAERS Safety Report 9911725 (Version 2)
Quarter: 2014Q1

REPORT INFORMATION
  Report Type: Spontaneous
  Country: US (occurrence: US)
  Receive Date: 20140219
  Receipt Date: 20140226
  Transmission Date: 20141002
  Serious: No
  Sender: FDA-Public Use
  Company Number: US-GILEAD-2014-0094831

PATIENT
  Sex: Female

DRUGS (2)
  1. LETAIRIS [Suspect]
     Indication: PULMONARY HYPERTENSION
     Dosage: 10 MG, QD
     Route: 048
     Dates: start: 20131113, end: 20140217
  2. LETAIRIS [Suspect]
     Indication: POEMS SYNDROME

REACTIONS (3)
  - Dyspnoea [Unknown]
  - Drug ineffective [Recovered/Resolved]
  - Oedema peripheral [Unknown]
